FAERS Safety Report 10313230 (Version 1)
Quarter: 2014Q3

REPORT INFORMATION
  Report Type: Spontaneous
  Country: GB (occurrence: None)
  Receive Date: 20140716
  Receipt Date: 20140716
  Transmission Date: 20150326
  Serious: Yes (Other)
  Sender: FDA-Public Use
  Company Number: AUR-APL-2014-07322

PATIENT
  Age: 40 Year
  Sex: Male
  Weight: 96 kg

DRUGS (1)
  1. SERTRALINE [Suspect]
     Active Substance: SERTRALINE HYDROCHLORIDE
     Indication: DEPRESSION
     Route: 048
     Dates: start: 20140602, end: 20140623

REACTIONS (10)
  - Dizziness [None]
  - Condition aggravated [None]
  - Tremor [None]
  - Nausea [None]
  - Suicidal ideation [None]
  - Depression [None]
  - Product substitution issue [None]
  - Paranoia [None]
  - Anxiety [None]
  - Depressed mood [None]

NARRATIVE: CASE EVENT DATE: 20140602
